FAERS Safety Report 13956903 (Version 1)
Quarter: 2017Q3

REPORT INFORMATION
  Report Type: Report from Study
  Country: US (occurrence: US)
  Receive Date: 20170911
  Receipt Date: 20170911
  Transmission Date: 20171128
  Serious: Yes (Other)
  Sender: FDA-Public Use
  Company Number: US-BAXTER-2017BAX032236

PATIENT

DRUGS (2)
  1. OSMITROL [Suspect]
     Active Substance: MANNITOL
     Indication: BRAIN OEDEMA
     Dosage: LOW DOSE
     Route: 065
  2. 3% SODIUM CHLORIDE INJECTION [Suspect]
     Active Substance: SODIUM CHLORIDE
     Indication: BRAIN OEDEMA
     Dosage: 30 ML/HOUR
     Route: 041

REACTIONS (1)
  - Acute kidney injury [Recovered/Resolved]
